FAERS Safety Report 17846903 (Version 1)
Quarter: 2020Q2

REPORT INFORMATION
  Report Type: Spontaneous
  Country: US (occurrence: US)
  Receive Date: 20200601
  Receipt Date: 20200601
  Transmission Date: 20200714
  Serious: No
  Sender: FDA-Public Use
  Company Number: None

PATIENT
  Age: 73 Year
  Sex: Female
  Weight: 65.25 kg

DRUGS (4)
  1. SUMATRIPTAN. [Concomitant]
     Active Substance: SUMATRIPTAN
  2. LISINOPRIL. [Concomitant]
     Active Substance: LISINOPRIL
  3. AMBIEN [Concomitant]
     Active Substance: ZOLPIDEM TARTRATE
  4. OXYCODONE HCL 15 MG. [Suspect]
     Active Substance: OXYCODONE HYDROCHLORIDE
     Indication: PAIN
     Dosage: ?          QUANTITY:180 TABLET(S);?
     Route: 048
     Dates: start: 20200522, end: 20200601

REACTIONS (2)
  - Headache [None]
  - Inadequate analgesia [None]

NARRATIVE: CASE EVENT DATE: 20200522
